FAERS Safety Report 16983995 (Version 3)
Quarter: 2022Q3

REPORT INFORMATION
  Report Type: Report from Study
  Country: CN (occurrence: CN)
  Receive Date: 20191101
  Receipt Date: 20220823
  Transmission Date: 20221027
  Serious: Yes (Hospitalization, Other)
  Sender: FDA-Public Use
  Company Number: CN-JNJFOC-20190938660

PATIENT
  Age: 69 Year
  Sex: Male
  Weight: 69 kg

DRUGS (10)
  1. SIRTURO [Suspect]
     Active Substance: BEDAQUILINE FUMARATE
     Indication: Tuberculosis
     Route: 048
     Dates: start: 20190830, end: 20190912
  2. SIRTURO [Suspect]
     Active Substance: BEDAQUILINE FUMARATE
     Route: 048
     Dates: start: 20190913
  3. LINEZOLID [Suspect]
     Active Substance: LINEZOLID
     Indication: Tuberculosis
     Route: 048
     Dates: start: 20190829, end: 20191024
  4. LINEZOLID [Suspect]
     Active Substance: LINEZOLID
     Route: 048
     Dates: start: 20191025, end: 20191111
  5. LINEZOLID [Suspect]
     Active Substance: LINEZOLID
     Route: 048
     Dates: start: 20191126
  6. PARA-AMINOSALICYLIC ACID [Suspect]
     Active Substance: AMINOSALICYLIC ACID
     Indication: Tuberculosis
     Route: 048
     Dates: start: 20190829
  7. CLOFAZIMINE [Suspect]
     Active Substance: CLOFAZIMINE
     Indication: Tuberculosis
     Route: 048
     Dates: start: 20190829
  8. MOXIFLOXACIN [Suspect]
     Active Substance: MOXIFLOXACIN
     Indication: Tuberculosis
     Route: 048
     Dates: start: 20190829
  9. CYCLOSERINE [Suspect]
     Active Substance: CYCLOSERINE
     Indication: Tuberculosis
     Route: 048
     Dates: start: 20190829
  10. NOVOLOG [Concomitant]
     Active Substance: INSULIN ASPART
     Route: 065
     Dates: start: 20190829

REACTIONS (3)
  - Anaemia [Recovering/Resolving]
  - Gastrointestinal disorder [Recovering/Resolving]
  - Protein urine present [Not Recovered/Not Resolved]

NARRATIVE: CASE EVENT DATE: 20190927
